FAERS Safety Report 5571385-8 (Version None)
Quarter: 2007Q4

REPORT INFORMATION
  Report Type: 
  Country: None (occurrence: None)
  Receive Date: 20071221
  Receipt Date: 20070917
  Transmission Date: 20080405
  Serious: No
  Sender: FDA-Public Use
  Company Number: A0682428A

PATIENT
  Age: 66 Year
  Sex: Female

DRUGS (5)
  1. FLONASE [Suspect]
     Indication: DRUG USE FOR UNKNOWN INDICATION
     Dosage: 2 PER DAY
     Route: 045
     Dates: start: 20070903, end: 20070905
  2. ZOLOFT [Concomitant]
  3. PREVACID [Concomitant]
  4. IBUPROFEN [Concomitant]
  5. XANAX [Concomitant]

REACTIONS (4)
  - AGEUSIA [None]
  - APTYALISM [None]
  - DYSGEUSIA [None]
  - WEIGHT DECREASED [None]
